FAERS Safety Report 8033649-8 (Version None)
Quarter: 2012Q1

REPORT INFORMATION
  Report Type: 
  Country: None (occurrence: None)
  Receive Date: 20120110
  Receipt Date: 20111229
  Transmission Date: 20120608
  Serious: Yes (Death)
  Sender: FDA-Public Use
  Company Number: GB-UCBSA-044480

PATIENT
  Age: 74 Year
  Sex: Female
  Weight: 80 kg

DRUGS (13)
  1. ASPIRIN [Concomitant]
  2. CIMZIA [Suspect]
     Indication: RHEUMATOID ARTHRITIS
     Route: 058
     Dates: start: 20101201, end: 20110215
  3. LANSOPRAZOLE [Concomitant]
  4. NABUMETONE [Concomitant]
  5. VENLAFAXINE [Concomitant]
  6. FENTANYL [Concomitant]
  7. DIGOXIN [Concomitant]
  8. FUROSEMIDE [Concomitant]
  9. GLICLAZIDE [Concomitant]
  10. METFORMIN HCL [Concomitant]
  11. PREDNISOLONE [Concomitant]
  12. CARBIMAZOLE [Concomitant]
  13. RAMIPRIL [Concomitant]

REACTIONS (4)
  - DEATH [None]
  - C-REACTIVE PROTEIN INCREASED [None]
  - PYREXIA [None]
  - SEPSIS [None]
